FAERS Safety Report 4865263-7 (Version None)
Quarter: 2005Q4

REPORT INFORMATION
  Report Type: 
  Country: None (occurrence: None)
  Receive Date: 20051223
  Receipt Date: 20051219
  Transmission Date: 20060501
  Serious: Yes (Hospitalization)
  Sender: FDA-Public Use
  Company Number: 2005GB02458

PATIENT
  Age: 47 Year
  Sex: Male

DRUGS (8)
  1. ATENOLOL [Suspect]
     Route: 065
     Dates: end: 20051110
  2. DILTIAZEM HCL [Interacting]
     Indication: BLOOD PRESSURE INCREASED
     Route: 048
     Dates: start: 20051103, end: 20051110
  3. LISINOPRIL [Concomitant]
     Route: 065
  4. BENDROFLUAZIDE [Concomitant]
     Route: 048
  5. MOXONIDINE [Concomitant]
     Route: 048
  6. GLICLAZIDE [Concomitant]
     Route: 048
  7. ATORVASTATIN [Concomitant]
     Route: 048
  8. THIAMINE [Concomitant]
     Route: 048

REACTIONS (5)
  - BRADYCARDIA [None]
  - DRUG INTERACTION [None]
  - HYPERKALAEMIA [None]
  - HYPOTENSION [None]
  - RENAL FAILURE [None]
